FAERS Safety Report 8963670 (Version 2)
Quarter: 2013Q4

REPORT INFORMATION
  Report Type: Spontaneous
  Country: US (occurrence: US)
  Receive Date: 20121214
  Receipt Date: 20131028
  Transmission Date: 20140711
  Serious: Yes (Hospitalization, Other)
  Sender: FDA-Public Use
  Company Number: US-BAYER-2012-130119

PATIENT
  Sex: Female

DRUGS (17)
  1. YAZ [Suspect]
     Dosage: UNK
     Dates: start: 200907, end: 200912
  2. ALPRAZOLAM [Concomitant]
     Dosage: 1 DF, BID
     Route: 048
     Dates: start: 20090826
  3. AMFETAMINE W/DEXAMFETAMINE [Concomitant]
     Dosage: 1 DF, QD
     Route: 048
     Dates: start: 20090918
  4. AMFETAMINE W/DEXAMFETAMINE [Concomitant]
     Dosage: 20 MG
     Route: 048
     Dates: start: 20091030
  5. NAPROXEN [Concomitant]
     Dosage: 1 DF, BID WITH FOOD
     Route: 048
     Dates: start: 20091006
  6. NAPROXEN [Concomitant]
     Dosage: 250 MG
     Route: 048
     Dates: start: 20091111
  7. MOBIC [Concomitant]
     Dosage: UNK
     Route: 048
     Dates: start: 20091030
  8. ACETAMINOPHEN W/CODEINE [Concomitant]
     Indication: PAIN
     Dosage: 300MG/30MG, TAKE 1-2 TABLETS EVERY 6 HOURS AS NEEDED
     Dates: start: 20091006, end: 20091105
  9. PERCOCET [Concomitant]
     Indication: PAIN
     Dosage: 5 MG/325 MG
     Dates: start: 20091105
  10. PERCOCET [Concomitant]
     Indication: PAIN
     Dosage: 5-325 MG TAB, 1-2 TABS EVERY 6 HOURS, PRN
     Route: 048
  11. FLONASE [Concomitant]
     Dosage: 50 MG
     Dates: start: 20091105
  12. GUAIFENESIN/CODEINE [Concomitant]
     Dosage: UNK
     Route: 048
     Dates: start: 20091105
  13. BENTYL [Concomitant]
     Dosage: 20 MG
     Route: 048
     Dates: start: 20091106
  14. PHENERGAN [Concomitant]
     Dosage: UNK
     Route: 048
     Dates: start: 20091111
  15. COLACE [Concomitant]
     Dosage: 250 MG, QD
     Route: 048
  16. MOTRIN [Concomitant]
     Indication: PAIN
     Dosage: 800 MG EVERY 8 HOURS, PRN
  17. WELLBUTRIN [Concomitant]

REACTIONS (9)
  - Cholelithiasis [None]
  - Abdominal pain [None]
  - Cholecystitis chronic [None]
  - Injury [None]
  - Pain [None]
  - Emotional distress [None]
  - General physical health deterioration [None]
  - Anxiety [None]
  - Pain [None]
